FAERS Safety Report 6293277-1 (Version None)
Quarter: 2009Q3

REPORT INFORMATION
  Report Type: 
  Country: None (occurrence: None)
  Receive Date: 20090731
  Receipt Date: 20090722
  Transmission Date: 20100115
  Serious: Yes (Hospitalization, Other)
  Sender: FDA-Public Use
  Company Number: US-AMGEN-QUU357047

PATIENT
  Age: 63 Year
  Sex: Female

DRUGS (1)
  1. ENBREL [Suspect]
     Indication: PSORIATIC ARTHROPATHY

REACTIONS (10)
  - ALOPECIA [None]
  - COELIAC DISEASE [None]
  - DEHYDRATION [None]
  - FEELING HOT [None]
  - FOOD ALLERGY [None]
  - IMPAIRED WORK ABILITY [None]
  - LYMPHADENOPATHY [None]
  - MADAROSIS [None]
  - NERVOUS SYSTEM DISORDER [None]
  - PAIN [None]
